FAERS Safety Report 8561473-6 (Version None)
Quarter: 2012Q3

REPORT INFORMATION
  Report Type: 
  Country: None (occurrence: None)
  Receive Date: 20120802
  Receipt Date: 20120723
  Transmission Date: 20120928
  Serious: Yes (Life-Threatening, Hospitalization)
  Sender: FDA-Public Use
  Company Number: US-009507513-1207USA011297

PATIENT

DRUGS (2)
  1. QUETIAPINE FUMARATE [Suspect]
     Dosage: 400 MG, BID
     Route: 048
  2. ZOCOR [Suspect]
     Dosage: 20 MG, HS
     Route: 048

REACTIONS (3)
  - SYNCOPE [None]
  - RHABDOMYOLYSIS [None]
  - RENAL FAILURE ACUTE [None]
